FAERS Safety Report 23155925 (Version 1)
Quarter: 2023Q4

REPORT INFORMATION
  Report Type: Spontaneous
  Country: GB (occurrence: GB)
  Receive Date: 20231107
  Receipt Date: 20231107
  Transmission Date: 20240110
  Serious: Yes (Other)
  Sender: FDA-Public Use
  Company Number: None

PATIENT
  Age: 47 Year
  Sex: Female
  Weight: 69 kg

DRUGS (11)
  1. DEPO-PROVERA [Suspect]
     Active Substance: MEDROXYPROGESTERONE ACETATE
     Dosage: 1ML USE AS DIRECTED
     Dates: start: 20231012
  2. CLARITHROMYCIN [Concomitant]
     Active Substance: CLARITHROMYCIN
     Dosage: EVERY 12 HOURS
     Dates: start: 20230829, end: 20230905
  3. LYMECYCLINE [Concomitant]
     Active Substance: LYMECYCLINE
     Dosage: 1 DF, 1X/DAY
     Dates: start: 20231031
  4. PREDNISOLONE [Concomitant]
     Active Substance: PREDNISOLONE
     Dosage: TAPERING DOSE, 6 DAILY FOR 5 DAYS
     Dates: start: 20230912
  5. PREDNISOLONE [Concomitant]
     Active Substance: PREDNISOLONE
     Dosage: 5 DAILY FOR 5 DAYS
  6. PREDNISOLONE [Concomitant]
     Active Substance: PREDNISOLONE
     Dosage: 4 DAILY FOR 5 DAYS
  7. PREDNISOLONE [Concomitant]
     Active Substance: PREDNISOLONE
     Dosage: 3 DAILY FOR 5 DAYS
  8. PREDNISOLONE [Concomitant]
     Active Substance: PREDNISOLONE
     Dosage: 2 DAILY FOR 5 DAYS
  9. PREDNISOLONE [Concomitant]
     Active Substance: PREDNISOLONE
     Dosage: 1 DAILY FOR 5 DAYS
     Dates: end: 20231012
  10. RIVAROXABAN [Concomitant]
     Active Substance: RIVAROXABAN
     Dates: start: 20221109
  11. TACROLIMUS [Concomitant]
     Active Substance: TACROLIMUS
     Dosage: APPLY FOR 2 WEEKS
     Dates: start: 20231031

REACTIONS (1)
  - Perioral dermatitis [Recovering/Resolving]
